FAERS Safety Report 8063985-0 (Version None)
Quarter: 2012Q1

REPORT INFORMATION
  Report Type: 
  Country: None (occurrence: None)
  Receive Date: 20120123
  Receipt Date: 20120112
  Transmission Date: 20120608
  Serious: Yes (Hospitalization, Other)
  Sender: FDA-Public Use
  Company Number: PHHY2012JP002526

PATIENT
  Age: 36 Year
  Sex: Female

DRUGS (2)
  1. CLOZARIL [Suspect]
     Indication: SCHIZOPHRENIA
     Route: 048
     Dates: start: 20110915, end: 20120107
  2. HALOPERIDOL [Concomitant]
     Dates: start: 20120106

REACTIONS (8)
  - MENTAL DISORDER [None]
  - RESPIRATORY FAILURE [None]
  - SOLILOQUY [None]
  - LOSS OF CONSCIOUSNESS [None]
  - PORIOMANIA [None]
  - PNEUMONIA ASPIRATION [None]
  - OXYGEN SATURATION DECREASED [None]
  - VOMITING [None]
